FAERS Safety Report 15170084 (Version 1)
Quarter: 2018Q3

REPORT INFORMATION
  Report Type: Spontaneous
  Country: US (occurrence: US)
  Receive Date: 20180720
  Receipt Date: 20180720
  Transmission Date: 20181010
  Serious: No
  Sender: FDA-Public Use
  Company Number: US-PFIZER INC-2018292317

PATIENT
  Age: 76 Year
  Sex: Female
  Weight: 58.96 kg

DRUGS (1)
  1. IBRANCE [Suspect]
     Active Substance: PALBOCICLIB
     Indication: BREAST CANCER
     Dosage: 125 MG, CYCLIC(D1?D21Q28D)
     Route: 048
     Dates: start: 20170822, end: 20180717

REACTIONS (1)
  - Neoplasm progression [Unknown]
